FAERS Safety Report 23487686 (Version 3)
Quarter: 2024Q2

REPORT INFORMATION
  Report Type: Report from Study
  Country: US (occurrence: US)
  Receive Date: 20240206
  Receipt Date: 20240506
  Transmission Date: 20240716
  Serious: Yes (Other)
  Sender: FDA-Public Use
  Company Number: US-PFIZER INC-202400032857

PATIENT
  Age: 71 Year
  Sex: Female

DRUGS (7)
  1. VYNDAMAX [Suspect]
     Active Substance: TAFAMIDIS
     Dosage: TAKE 61MG DAILY ORALLY
     Route: 048
     Dates: start: 20231230
  2. AMVUTTRA [Suspect]
     Active Substance: VUTRISIRAN
     Dosage: UNK
  3. RETINOL [Concomitant]
     Active Substance: RETINOL
     Dosage: UNK
  4. SYNTHROID [Concomitant]
     Active Substance: LEVOTHYROXINE SODIUM
     Dosage: UNK
  5. ZINC [Concomitant]
     Active Substance: PYRITHIONE ZINC\ZINC\ZINC CHLORIDE
     Dosage: UNK
  6. MAGNESIUM [Concomitant]
     Active Substance: MAGNESIUM
     Dosage: UNK
  7. ASPIRIN [Concomitant]
     Active Substance: ASPIRIN
     Dosage: UNK

REACTIONS (11)
  - Cardiac arrest [Unknown]
  - Dyspnoea [Not Recovered/Not Resolved]
  - Heart rate irregular [Unknown]
  - Nervous system disorder [Recovering/Resolving]
  - Muscular weakness [Recovering/Resolving]
  - Depression [Unknown]
  - Impaired work ability [Unknown]
  - Myalgia [Unknown]
  - Hypotension [Recovered/Resolved]
  - Gait disturbance [Not Recovered/Not Resolved]
  - Pain [Not Recovered/Not Resolved]

NARRATIVE: CASE EVENT DATE: 20240101
